FAERS Safety Report 8099019-1 (Version None)
Quarter: 2012Q1

REPORT INFORMATION
  Report Type: 
  Country: None (occurrence: None)
  Receive Date: 20120131
  Receipt Date: 20120125
  Transmission Date: 20120608
  Serious: Yes (Other)
  Sender: FDA-Public Use
  Company Number: DE-AMGEN-DEUSP2012002180

PATIENT
  Sex: Male

DRUGS (5)
  1. CALCIUM + D3 [Concomitant]
  2. XGEVA [Suspect]
     Indication: RENAL CELL CARCINOMA
     Dosage: 120 MG, UNK
     Dates: start: 20111201
  3. TORISEL [Concomitant]
     Dosage: 25 MG, QWK
     Route: 042
  4. TORSEMIDE [Concomitant]
  5. PANTOZAL [Concomitant]

REACTIONS (3)
  - NEOPLASM [None]
  - HYPOCALCAEMIA [None]
  - SUBILEUS [None]
